FAERS Safety Report 25217763 (Version 1)
Quarter: 2025Q2

REPORT INFORMATION
  Report Type: Report from Study
  Country: CA (occurrence: CA)
  Receive Date: 20250420
  Receipt Date: 20250420
  Transmission Date: 20250716
  Serious: Yes (Other)
  Sender: ABBVIE
  Company Number: CA-ABBVIE-6127903

PATIENT
  Sex: Female

DRUGS (1)
  1. SKYRIZI [Suspect]
     Active Substance: RISANKIZUMAB-RZAA
     Indication: Crohn^s disease
     Route: 058

REACTIONS (9)
  - Ileostomy [Unknown]
  - Wound dehiscence [Unknown]
  - Gastrointestinal pain [Unknown]
  - Rectal haemorrhage [Unknown]
  - Abdominal distension [Unknown]
  - Inflammation [Unknown]
  - Postoperative abscess [Unknown]
  - Crohn^s disease [Unknown]
  - Immune system disorder [Unknown]
